FAERS Safety Report 23667329 (Version 1)
Quarter: 2024Q1

REPORT INFORMATION
  Report Type: Spontaneous
  Country: TW (occurrence: TW)
  Receive Date: 20240325
  Receipt Date: 20240325
  Transmission Date: 20240410
  Serious: Yes (Death)
  Sender: FDA-Public Use
  Company Number: TW-MTPC-MTPC2024-0005962

PATIENT
  Age: 76 Year
  Sex: Male

DRUGS (1)
  1. REMICADE [Suspect]
     Active Substance: INFLIXIMAB
     Indication: Rheumatoid arthritis
     Dosage: 3 MILLIGRAM/KILOGRAM, QD
     Route: 042
     Dates: start: 20240123, end: 20240310

REACTIONS (2)
  - Pneumonia [Fatal]
  - Death [Fatal]

NARRATIVE: CASE EVENT DATE: 20240308
